FAERS Safety Report 5674779-5 (Version None)
Quarter: 2008Q1

REPORT INFORMATION
  Report Type: 
  Country: None (occurrence: None)
  Receive Date: 20080320
  Receipt Date: 20080313
  Transmission Date: 20080703
  Serious: Yes (Other)
  Sender: FDA-Public Use
  Company Number: CA-ASTRAZENECA-2008UW05112

PATIENT
  Sex: Male

DRUGS (6)
  1. LOSEC I.V. [Suspect]
     Indication: GASTROOESOPHAGEAL REFLUX DISEASE
     Route: 048
     Dates: start: 20070101
  2. HYDROCHLOROTHIAZIDE [Concomitant]
     Dosage: 1/2 OD
     Route: 048
  3. CRESTOR [Concomitant]
     Route: 048
  4. VENTOLIN [Concomitant]
     Route: 055
  5. ADVAIR DISKUS 100/50 [Concomitant]
     Dosage: 250 II PUFFS BID
     Route: 055
  6. ATROVENT [Concomitant]
     Dosage: II PUFFS QID
     Route: 055

REACTIONS (1)
  - IDIOPATHIC THROMBOCYTOPENIC PURPURA [None]
